FAERS Safety Report 19805900 (Version 1)
Quarter: 2021Q3

REPORT INFORMATION
  Report Type: Spontaneous
  Country: US (occurrence: US)
  Receive Date: 20210908
  Receipt Date: 20210908
  Transmission Date: 20211014
  Serious: No
  Sender: FDA-Public Use
  Company Number: US-ASTELLAS-2021US003377

PATIENT
  Age: 89 Year
  Sex: Male

DRUGS (1)
  1. XTANDI [Suspect]
     Active Substance: ENZALUTAMIDE
     Indication: PRODUCT USED FOR UNKNOWN INDICATION
     Route: 065
     Dates: start: 202011, end: 202101

REACTIONS (7)
  - Food intolerance [Unknown]
  - Condition aggravated [Unknown]
  - Condition aggravated [Recovering/Resolving]
  - Balance disorder [Unknown]
  - Mobility decreased [Unknown]
  - Memory impairment [Recovering/Resolving]
  - Fatigue [Recovering/Resolving]
